FAERS Safety Report 8207658-X (Version None)
Quarter: 2012Q1

REPORT INFORMATION
  Report Type: 
  Country: None (occurrence: None)
  Receive Date: 20120313
  Receipt Date: 20120313
  Transmission Date: 20120608
  Serious: No
  Sender: FDA-Public Use
  Company Number: None

PATIENT
  Sex: Female

DRUGS (1)
  1. ENBREL [Suspect]
     Indication: RHEUMATOID ARTHRITIS
     Dosage: 50MG WEEKLY SQ
     Route: 058
     Dates: start: 20111209, end: 20120209

REACTIONS (6)
  - NIGHTMARE [None]
  - DIARRHOEA [None]
  - FATIGUE [None]
  - CHILLS [None]
  - WEIGHT DECREASED [None]
  - BLOOD GLUCOSE INCREASED [None]
